FAERS Safety Report 21755189 (Version 1)
Quarter: 2022Q4

REPORT INFORMATION
  Report Type: Spontaneous
  Country: US (occurrence: US)
  Receive Date: 20221220
  Receipt Date: 20221220
  Transmission Date: 20230112
  Serious: No
  Sender: FDA-Public Use
  Company Number: US-RECKITT BENCKISER HEALTHCARE INT LIMITED-RB-98839-2021

PATIENT
  Sex: Female

DRUGS (1)
  1. DELSYM [Suspect]
     Active Substance: DEXTROMETHORPHAN
     Indication: Oropharyngeal pain
     Dosage: UNK
     Route: 048
     Dates: start: 2021

REACTIONS (2)
  - Abdominal discomfort [Recovered/Resolved]
  - Product formulation issue [Unknown]

NARRATIVE: CASE EVENT DATE: 20210101
